FAERS Safety Report 7472118-0 (Version None)
Quarter: 2011Q2

REPORT INFORMATION
  Report Type: 
  Country: None (occurrence: None)
  Receive Date: 20110511
  Receipt Date: 20110107
  Transmission Date: 20111010
  Serious: No
  Sender: FDA-Public Use
  Company Number: A0904095A

PATIENT
  Age: 70 Year
  Sex: Female

DRUGS (5)
  1. WARFARIN [Concomitant]
  2. NEXIUM [Concomitant]
  3. TYKERB [Suspect]
     Indication: BREAST CANCER
     Dosage: 4TAB PER DAY
     Route: 048
     Dates: start: 20101230
  4. HERCEPTIN [Concomitant]
  5. GABAPENTIN [Concomitant]

REACTIONS (8)
  - FATIGUE [None]
  - ABDOMINAL PAIN UPPER [None]
  - TEMPERATURE INTOLERANCE [None]
  - HYPERAESTHESIA [None]
  - NAUSEA [None]
  - DYSGEUSIA [None]
  - SKIN WRINKLING [None]
  - DIARRHOEA [None]
